FAERS Safety Report 6279458-1 (Version None)
Quarter: 2009Q3

REPORT INFORMATION
  Report Type: 
  Country: None (occurrence: None)
  Receive Date: 20090723
  Receipt Date: 20090717
  Transmission Date: 20100115
  Serious: Yes (Other)
  Sender: FDA-Public Use
  Company Number: B0579510A

PATIENT
  Sex: Female

DRUGS (5)
  1. ALLI [Suspect]
     Indication: OVERWEIGHT
     Route: 048
  2. ALBUTEROL [Concomitant]
  3. CARDURA [Concomitant]
  4. FRUSEMIDE [Concomitant]
  5. THYROXIN [Concomitant]

REACTIONS (3)
  - ANAPHYLACTIC SHOCK [None]
  - PRODUCT QUALITY ISSUE [None]
  - SWOLLEN TONGUE [None]
